FAERS Safety Report 9988452 (Version 1)
Quarter: 2014Q1

REPORT INFORMATION
  Report Type: Spontaneous
  Country: US (occurrence: US)
  Receive Date: 20140310
  Receipt Date: 20140310
  Transmission Date: 20141002
  Serious: Yes (Hospitalization)
  Sender: FDA-Public Use
  Company Number: US-009507513-1403USA003011

PATIENT
  Age: 37 Year
  Sex: Female

DRUGS (2)
  1. DECADRON [Suspect]
  2. COPAXONE [Suspect]
     Indication: MULTIPLE SCLEROSIS
     Dosage: 20 MG, UNK
     Dates: start: 20140116

REACTIONS (1)
  - Blood glucose increased [Not Recovered/Not Resolved]
